FAERS Safety Report 4519542-3 (Version None)
Quarter: 2004Q4

REPORT INFORMATION
  Report Type: 
  Country: None (occurrence: None)
  Receive Date: 20041129
  Receipt Date: 20041119
  Transmission Date: 20050328
  Serious: Yes (Life-Threatening, Hospitalization, Other)
  Sender: FDA-Public Use
  Company Number: HQWYE093307MAY03

PATIENT
  Age: 34 Year
  Sex: Male

DRUGS (6)
  1. REFACTO [Suspect]
     Indication: FACTOR VIII DEFICIENCY
     Dosage: 2000 IU 2 TIMES PER WEEK (25 IU/KG) INTRAVENOUS
     Route: 042
     Dates: start: 20021114
  2. REFACTO [Suspect]
     Indication: PROPHYLAXIS
     Dosage: DAILY DOSE RANGED FROM 2000 IU TO 16,000 IU INTRAVENOUS
     Route: 042
     Dates: start: 20030506, end: 20030514
  3. REFACTO [Suspect]
  4. REFACTO [Suspect]
  5. COMBIVIR [Concomitant]
  6. NEVIRAPINE (NEVIRAPINE) [Concomitant]

REACTIONS (12)
  - ABDOMINAL PAIN [None]
  - COAGULATION FACTOR VIII LEVEL DECREASED [None]
  - DEPRESSED LEVEL OF CONSCIOUSNESS [None]
  - DRUG HALF-LIFE REDUCED [None]
  - GENERAL PHYSICAL HEALTH DETERIORATION [None]
  - MUSCLE STRAIN [None]
  - NOSOCOMIAL INFECTION [None]
  - RENAL FAILURE ACUTE [None]
  - RESPIRATORY FAILURE [None]
  - RETROPERITONEAL HAEMORRHAGE [None]
  - SHOCK [None]
  - THERAPEUTIC RESPONSE DECREASED [None]
